FAERS Safety Report 6407373-9 (Version None)
Quarter: 2009Q4

REPORT INFORMATION
  Report Type: 
  Country: None (occurrence: None)
  Receive Date: 20091020
  Receipt Date: 20091008
  Transmission Date: 20100525
  Serious: Yes (Hospitalization)
  Sender: FDA-Public Use
  Company Number: ES-ELI_LILLY_AND_COMPANY-ES200910002592

PATIENT
  Sex: Male
  Weight: 72.2 kg

DRUGS (7)
  1. PEMETREXED [Suspect]
     Indication: NON-SMALL CELL LUNG CANCER
     Dosage: 963, EVERY 21 DAYS
     Dates: start: 20090806
  2. CISPLATIN [Suspect]
     Indication: NON-SMALL CELL LUNG CANCER
     Dosage: 144, EVERY 21 DAYS
     Dates: start: 20090806
  3. CETUXIMAB [Suspect]
     Indication: NON-SMALL CELL LUNG CANCER
     Dosage: 481, WEEKLY (1/W)
     Dates: start: 20090806
  4. FOLIC ACID [Concomitant]
     Indication: PROPHYLAXIS
     Dates: start: 20090720
  5. GABAPENTIN [Concomitant]
     Indication: PAIN
     Dates: start: 20090701
  6. PANTOPRAZOLE SODIUM [Concomitant]
     Indication: PROPHYLAXIS
     Dosage: UNK, UNK
     Dates: start: 20090820
  7. OXYCODONE [Concomitant]
     Indication: PAIN
     Dates: start: 20090820

REACTIONS (1)
  - BONE PAIN [None]
